FAERS Safety Report 6674653-1 (Version None)
Quarter: 2010Q2

REPORT INFORMATION
  Report Type: 
  Country: None (occurrence: None)
  Receive Date: 20100409
  Receipt Date: 20100402
  Transmission Date: 20101027
  Serious: Yes (Death)
  Sender: FDA-Public Use
  Company Number: US-ROCHE-696066

PATIENT

DRUGS (2)
  1. BEVACIZUMAB [Suspect]
     Dosage: LAST DOSE PRIOR TO SAE 24 DEC 2009,DOSE 30-90MIN ON DAY 1 AND 15, CYC =28 DAYS
     Route: 042
     Dates: start: 20091119
  2. IXABEPILONE [Suspect]
     Dosage: LAST DOSE PRIOR TO SAE 24 DEC 2009, OVER 1 HR ON DAY 1,8 AND 15, CYC=28 DAYS
     Route: 042
     Dates: start: 20091119

REACTIONS (1)
  - INTRA-ABDOMINAL HAEMORRHAGE [None]
